FAERS Safety Report 20538384 (Version 1)
Quarter: 2022Q1

REPORT INFORMATION
  Report Type: Spontaneous
  Country: US (occurrence: None)
  Receive Date: 20220302
  Receipt Date: 20220302
  Transmission Date: 20220423
  Serious: Yes (Death, Hospitalization)
  Sender: FDA-Public Use
  Company Number: None

PATIENT
  Sex: Male
  Weight: 16.5 kg

DRUGS (6)
  1. DAUNORUBICIN [Suspect]
     Active Substance: DAUNORUBICIN
  2. DEXAMETHASONE [Concomitant]
     Active Substance: DEXAMETHASONE
  3. CYTARABINE [Concomitant]
  4. METHOTREXATE [Concomitant]
     Active Substance: METHOTREXATE
  5. PEG-L-ASPARAGINASE, ONCOSPAR [Concomitant]
  6. VINCRISTINE SULFATE [Concomitant]
     Active Substance: VINCRISTINE SULFATE

REACTIONS (36)
  - Respiratory failure [None]
  - Acute kidney injury [None]
  - Mental status changes postoperative [None]
  - Pleural effusion [None]
  - Atelectasis [None]
  - Haemodialysis [None]
  - Shock [None]
  - Labile blood pressure [None]
  - Cardiac arrest [None]
  - Hepatomegaly [None]
  - Ultrasound scan abnormal [None]
  - Abscess [None]
  - Hepatitis cholestatic [None]
  - Steatohepatitis [None]
  - Candida infection [None]
  - Candida sepsis [None]
  - Systemic candida [None]
  - Skin candida [None]
  - Cystitis [None]
  - Kidney infection [None]
  - Hepatic infection [None]
  - Splenic infection [None]
  - Central nervous system infection [None]
  - Drug interaction [None]
  - Drug level below therapeutic [None]
  - Febrile neutropenia [None]
  - Haemodialysis complication [None]
  - Catheter culture positive [None]
  - Staphylococcal infection [None]
  - Transfusion [None]
  - Renal failure [None]
  - Haemofiltration [None]
  - Nephritis [None]
  - Bladder disorder [None]
  - Purulent discharge [None]
  - Feeding intolerance [None]

NARRATIVE: CASE EVENT DATE: 20220202
